FAERS Safety Report 8228358-6 (Version None)
Quarter: 2012Q1

REPORT INFORMATION
  Report Type: 
  Country: None (occurrence: None)
  Receive Date: 20120322
  Receipt Date: 20111205
  Transmission Date: 20120608
  Serious: Yes (Other)
  Sender: FDA-Public Use
  Company Number: US-BRISTOL-MYERS SQUIBB COMPANY-16041691

PATIENT
  Age: 52 Year
  Sex: Male

DRUGS (15)
  1. CYANOCOBALAMIN [Concomitant]
  2. ERBITUX [Suspect]
     Indication: HEAD AND NECK CANCER
     Route: 042
     Dates: start: 20110907
  3. COQ10 [Concomitant]
  4. MULTIVITAMIN WITH MINERALS [Concomitant]
  5. FISH OIL [Concomitant]
  6. ASPIRIN [Concomitant]
  7. FLUCONAZOLE [Concomitant]
     Dates: start: 20110828
  8. SODIUM CHLORIDE [Concomitant]
  9. VITAMIN [Concomitant]
  10. CLINDAMYCIN [Concomitant]
  11. BENADRYL [Concomitant]
  12. OMEPRAZOLE [Concomitant]
  13. ACETAMINOPHEN [Concomitant]
     Dates: start: 20110829
  14. CRESTOR [Concomitant]
  15. MINERAL TAB [Concomitant]

REACTIONS (5)
  - URTICARIA [None]
  - PRURITUS [None]
  - DYSPNOEA [None]
  - COUGH [None]
  - OCULAR HYPERAEMIA [None]
